FAERS Safety Report 8434445-X (Version None)
Quarter: 2012Q2

REPORT INFORMATION
  Report Type: 
  Country: None (occurrence: None)
  Receive Date: 20120614
  Receipt Date: 20120601
  Transmission Date: 20120825
  Serious: Yes (Other)
  Sender: FDA-Public Use
  Company Number: JP-AMGEN-JPNSP2012032690

PATIENT
  Age: 55 Year
  Sex: Female

DRUGS (3)
  1. RIMATIL [Concomitant]
     Dosage: UNK
     Route: 048
  2. PREDNISOLONE [Concomitant]
     Dosage: UNK
     Route: 048
  3. ENBREL [Suspect]
     Indication: RHEUMATOID ARTHRITIS
     Dosage: 50 MG, WEEKLY
     Route: 058

REACTIONS (1)
  - GASTRIC CANCER [None]
